FAERS Safety Report 21861540 (Version 5)
Quarter: 2023Q4

REPORT INFORMATION
  Report Type: Spontaneous
  Country: US (occurrence: US)
  Receive Date: 20230113
  Receipt Date: 20231114
  Transmission Date: 20240109
  Serious: No
  Sender: FDA-Public Use
  Company Number: US-PFIZER INC-PV202300006867

PATIENT
  Age: 13 Year
  Sex: Female
  Weight: 38 kg

DRUGS (3)
  1. RUXIENCE [Suspect]
     Active Substance: RITUXIMAB-PVVR
     Indication: Sjogren^s syndrome
     Dosage: 1000 MG, ONCE EVERY 2 WEEKS OVER 4-6 HOURS
     Route: 042
  2. METHOTREXATE SODIUM [Suspect]
     Active Substance: METHOTREXATE SODIUM
     Dosage: 12.5 MG, WEEKLY
     Route: 058
  3. HYDROXYCHLOROQUINE SULFATE [Suspect]
     Active Substance: HYDROXYCHLOROQUINE SULFATE
     Dosage: 200 MG, DAILY
     Route: 048

REACTIONS (5)
  - Off label use [Unknown]
  - COVID-19 [Unknown]
  - Blood immunoglobulin G increased [Unknown]
  - Amylase increased [Unknown]
  - Rheumatoid factor positive [Unknown]

NARRATIVE: CASE EVENT DATE: 20220701
